FAERS Safety Report 7793234-X (Version None)
Quarter: 2011Q3

REPORT INFORMATION
  Report Type: 
  Country: None (occurrence: None)
  Receive Date: 20110929
  Receipt Date: 20110916
  Transmission Date: 20111222
  Serious: Yes (Death, Hospitalization)
  Sender: FDA-Public Use
  Company Number: 1000021117

PATIENT
  Age: 80 Year
  Sex: Male
  Weight: 81 kg

DRUGS (6)
  1. ROFLUMILAST (ROFLUMILAST) (500 MICROGRAM, TABLETS) [Suspect]
     Indication: CHRONIC OBSTRUCTIVE PULMONARY DISEASE
     Dosage: 500 MCG (500 MCG,1 IN 1 D),ORAL
     Route: 048
  2. BELOC-ZOK MITE (METOPROLOL SUCCINATE) (METOPROLOL SUCCINATE) [Concomitant]
  3. TORASEMIDE (TORASEMIDE) (50 MILLIGRAM) (TORASEMIDE) [Concomitant]
  4. SPIRIVA (TIOTROPIUM BROMIDE) (TIOTROPIUM BROMIDE) [Concomitant]
  5. FOSTER (BECLOMETASONE DIPROPIONATE, FORMOTEROL FUMARATE DIHYDRATE) (BE [Concomitant]
  6. IMFLONID (BUDESONIDE) (BUDESONIDE) [Concomitant]

REACTIONS (13)
  - BUNDLE BRANCH BLOCK LEFT [None]
  - LACTIC ACIDOSIS [None]
  - ELECTROCARDIOGRAM REPOLARISATION ABNORMALITY [None]
  - OXYGEN SATURATION DECREASED [None]
  - RALES [None]
  - RESTLESSNESS [None]
  - HYPOTENSION [None]
  - CYANOSIS [None]
  - TONGUE DRY [None]
  - ATRIAL FLUTTER [None]
  - QRS AXIS ABNORMAL [None]
  - PNEUMONIA [None]
  - TACHYARRHYTHMIA [None]
